FAERS Safety Report 12599224 (Version 6)
Quarter: 2018Q1

REPORT INFORMATION
  Report Type: Spontaneous
  Country: US (occurrence: US)
  Receive Date: 20160727
  Receipt Date: 20180223
  Transmission Date: 20180508
  Serious: No
  Sender: FDA-Public Use
  Company Number: US-PFIZER INC-2016342287

PATIENT
  Age: 65 Year
  Sex: Female
  Weight: 59 kg

DRUGS (6)
  1. LOSARTAN. [Concomitant]
     Active Substance: LOSARTAN
     Indication: HYPERTENSION
     Dosage: 50 MG, UNK
  2. IBRANCE [Suspect]
     Active Substance: PALBOCICLIB
     Indication: BREAST CANCER STAGE IV
     Dosage: 125 MG, CYCLIC (ONCE A DAY FOR THREE WEEKS ON AND ONE WEEK OFF)
     Route: 048
     Dates: start: 201601, end: 201606
  3. IBRANCE [Suspect]
     Active Substance: PALBOCICLIB
     Dosage: 125 MG, CYCLIC (1 PER DAY FOR 21 DAYS THEN 7 DAYS OFF)
     Dates: start: 201602
  4. LOSARTAN. [Concomitant]
     Active Substance: LOSARTAN
     Indication: RENAL FAILURE
     Dosage: 100 MG, 1X/DAY
     Dates: start: 2013
  5. LOSARTAN. [Concomitant]
     Active Substance: LOSARTAN
     Dosage: 50 MG, 1X/DAY
     Route: 048
  6. LETROZOLE. [Concomitant]
     Active Substance: LETROZOLE
     Indication: HORMONE LEVEL ABNORMAL
     Dosage: 2.5 MG, 1X/DAY
     Route: 048
     Dates: start: 201601

REACTIONS (8)
  - Hair growth rate abnormal [Not Recovered/Not Resolved]
  - Platelet count decreased [Recovered/Resolved]
  - Hypersensitivity [Unknown]
  - Red blood cell count decreased [Not Recovered/Not Resolved]
  - Aphonia [Not Recovered/Not Resolved]
  - Neutrophil count decreased [Recovered/Resolved]
  - Neoplasm progression [Not Recovered/Not Resolved]
  - Alopecia [Not Recovered/Not Resolved]

NARRATIVE: CASE EVENT DATE: 201512
